FAERS Safety Report 25255793 (Version 1)
Quarter: 2025Q2

REPORT INFORMATION
  Report Type: Report from Study
  Country: CA (occurrence: CA)
  Receive Date: 20250430
  Receipt Date: 20250430
  Transmission Date: 20250716
  Serious: Yes (Hospitalization)
  Sender: ROCHE
  Company Number: CA-ROCHE-10000271923

PATIENT
  Age: 90 Year
  Sex: Female

DRUGS (1)
  1. VABYSMO [Suspect]
     Active Substance: FARICIMAB-SVOA
     Indication: Neovascular age-related macular degeneration
     Dosage: WAMD OU MONTHLY BILATERAL THERAPY
     Route: 050
     Dates: start: 20240412

REACTIONS (2)
  - Hernia perforation [Recovered/Resolved]
  - Appendicitis [Recovered/Resolved]
